FAERS Safety Report 14802742 (Version 1)
Quarter: 2018Q2

REPORT INFORMATION
  Report Type: Spontaneous
  Country: ZA (occurrence: ZA)
  Receive Date: 20180424
  Receipt Date: 20180424
  Transmission Date: 20180711
  Serious: Yes (Hospitalization)
  Sender: FDA-Public Use
  Company Number: ZA-PFIZER INC-2018162335

PATIENT
  Age: 61 Year
  Sex: Male

DRUGS (7)
  1. ASPEN /00002701/ [Suspect]
     Active Substance: ASPIRIN
  2. ASPAVOR [Suspect]
     Active Substance: ATORVASTATIN
  3. ECOTRIN [Suspect]
     Active Substance: ASPIRIN
  4. PREXUM [Suspect]
     Active Substance: PERINDOPRIL ERBUMINE
  5. WARFARIN [Suspect]
     Active Substance: WARFARIN
  6. FEDALOC [Suspect]
     Active Substance: NIFEDIPINE
  7. METFORMIN [Suspect]
     Active Substance: METFORMIN HYDROCHLORIDE

REACTIONS (1)
  - Spinal cord disorder [Unknown]

NARRATIVE: CASE EVENT DATE: 2017
